FAERS Safety Report 13153555 (Version 1)
Quarter: 2017Q1

REPORT INFORMATION
  Report Type: Spontaneous
  Country: GB (occurrence: GB)
  Receive Date: 20170126
  Receipt Date: 20170126
  Transmission Date: 20170428
  Serious: Yes (Hospitalization, Other)
  Sender: FDA-Public Use
  Company Number: PHFR2017GB000794

PATIENT
  Age: 42 Year
  Sex: Female
  Weight: 79.8 kg

DRUGS (1)
  1. TERBINAFINE. [Suspect]
     Active Substance: TERBINAFINE
     Indication: ONYCHOMYCOSIS
     Dosage: UNK
     Route: 048

REACTIONS (3)
  - Cholangitis acute [Recovered/Resolved]
  - Abdominal pain [Recovered/Resolved]
  - Liver function test abnormal [Unknown]
